FAERS Safety Report 11452547 (Version 2)
Quarter: 2015Q3

REPORT INFORMATION
  Report Type: Report from Study
  Country: US (occurrence: US)
  Receive Date: 20150903
  Receipt Date: 20150908
  Transmission Date: 20151125
  Serious: Yes (Hospitalization, Other)
  Sender: FDA-Public Use
  Company Number: US-BAXALTA-2015BLT001447

PATIENT
  Age: 66 Year
  Sex: Female

DRUGS (2)
  1. ARALAST NP [Suspect]
     Active Substance: .ALPHA.1-PROTEINASE INHIBITOR HUMAN
     Indication: ALPHA-1 ANTI-TRYPSIN DEFICIENCY
     Dosage: UNK UNK, 1X A WEEK
     Route: 042
     Dates: start: 2011
  2. PREDNISONE. [Concomitant]
     Active Substance: PREDNISONE
     Indication: PRODUCT USED FOR UNKNOWN INDICATION
     Dosage: VARIES BETWEEN 10,30,40MG DEPENDING ON NEED, EVERY 2 DY
     Route: 048
     Dates: start: 2000

REACTIONS (1)
  - Pneumonia [Recovering/Resolving]

NARRATIVE: CASE EVENT DATE: 20150817
